FAERS Safety Report 10191389 (Version 2)
Quarter: 2014Q3

REPORT INFORMATION
  Report Type: Spontaneous
  Country: US (occurrence: US)
  Receive Date: 20140523
  Receipt Date: 20140731
  Transmission Date: 20150326
  Serious: No
  Sender: FDA-Public Use
  Company Number: US-TEVA-483118USA

PATIENT
  Sex: Female

DRUGS (3)
  1. LOSARTAN [Concomitant]
     Active Substance: LOSARTAN
  2. QVAR [Suspect]
     Active Substance: BECLOMETHASONE DIPROPIONATE
     Route: 055
  3. AZELASTINE [Concomitant]
     Active Substance: AZELASTINE

REACTIONS (3)
  - Cough [Unknown]
  - Drug ineffective [Unknown]
  - Asthma [Unknown]
